FAERS Safety Report 12063128 (Version 1)
Quarter: 2016Q1

REPORT INFORMATION
  Report Type: Spontaneous
  Country: US (occurrence: US)
  Receive Date: 20160210
  Receipt Date: 20160210
  Transmission Date: 20160526
  Serious: No
  Sender: FDA-Public Use
  Company Number: US-ALLERGAN-1501024US

PATIENT
  Sex: Female

DRUGS (1)
  1. BOTOX COSMETIC [Suspect]
     Active Substance: ONABOTULINUMTOXINA
     Indication: SKIN WRINKLING
     Dosage: 2.5 UNITS, SINGLE
     Route: 030
     Dates: start: 20150114, end: 20150114

REACTIONS (8)
  - Facial spasm [Recovering/Resolving]
  - Facial pain [Recovering/Resolving]
  - Nonspecific reaction [Recovering/Resolving]
  - Injection site scab [Recovering/Resolving]
  - Injection site pain [Recovering/Resolving]
  - Injection site pallor [Recovering/Resolving]
  - Ischaemia [Recovering/Resolving]
  - Pain [Recovering/Resolving]

NARRATIVE: CASE EVENT DATE: 20150114
